FAERS Safety Report 21122437 (Version 4)
Quarter: 2022Q4

REPORT INFORMATION
  Report Type: Spontaneous
  Country: JP (occurrence: None)
  Receive Date: 20220723
  Receipt Date: 20221129
  Transmission Date: 20230112
  Serious: Yes (Death, Life-Threatening, Hospitalization, Other)
  Sender: FDA-Public Use
  Company Number: 2022A260106

PATIENT
  Age: 28731 Day
  Sex: Male
  Weight: 47 kg

DRUGS (3)
  1. IMFINZI [Suspect]
     Active Substance: DURVALUMAB
     Indication: Non-small cell lung cancer
     Route: 042
     Dates: start: 20220418, end: 20220516
  2. CEFEPIME [Concomitant]
     Active Substance: CEFEPIME HYDROCHLORIDE
     Indication: Febrile neutropenia
     Dosage: DOSE UNKNOWN
     Route: 065
     Dates: start: 20220329
  3. UNSPECIFIED INGREDIENT [Concomitant]
     Active Substance: UNSPECIFIED INGREDIENT
     Indication: Rash
     Dosage: DOSE UNKNOWN
     Route: 065
     Dates: start: 2022

REACTIONS (7)
  - Respiratory failure [Fatal]
  - Interstitial lung disease [Fatal]
  - Subdural haemorrhage [Unknown]
  - Fall [Unknown]
  - Radiation pneumonitis [Recovering/Resolving]
  - Delirium [Recovering/Resolving]
  - Subdural haematoma [Recovering/Resolving]

NARRATIVE: CASE EVENT DATE: 20220517
